FAERS Safety Report 23887664 (Version 1)
Quarter: 2024Q2

REPORT INFORMATION
  Report Type: Report from Study
  Country: US (occurrence: US)
  Receive Date: 20240523
  Receipt Date: 20240523
  Transmission Date: 20240716
  Serious: Yes (Hospitalization, Other)
  Sender: FDA-Public Use
  Company Number: US-GILEAD-2024-0673595

PATIENT
  Sex: Female

DRUGS (4)
  1. AZTREONAM LYSINE [Suspect]
     Active Substance: AZTREONAM LYSINE
     Indication: Cystic fibrosis lung
     Dosage: INHALE 1 ML VIAL (75 MG TOTAL) VIA ALTERA NEBULIZER 3 TIMES DAILY ALTERNATE ON AND OFF EVERY 28 DAYS
     Route: 055
     Dates: start: 202206
  2. AZTREONAM LYSINE [Suspect]
     Active Substance: AZTREONAM LYSINE
     Indication: Cystic fibrosis
  3. CREON [Concomitant]
     Active Substance: PANCRELIPASE AMYLASE\PANCRELIPASE LIPASE\PANCRELIPASE PROTEASE
     Dosage: UNK
  4. CEFEPIME [Concomitant]
     Active Substance: CEFEPIME HYDROCHLORIDE
     Dosage: UNK

REACTIONS (1)
  - Cystic fibrosis [Unknown]
